FAERS Safety Report 8565392-0 (Version None)
Quarter: 2012Q3

REPORT INFORMATION
  Report Type: 
  Country: None (occurrence: None)
  Receive Date: 20120803
  Receipt Date: 20120723
  Transmission Date: 20120928
  Serious: Yes (Hospitalization, Disabling)
  Sender: FDA-Public Use
  Company Number: JP-MSD-1206USA00938

PATIENT

DRUGS (13)
  1. HALCION [Concomitant]
     Indication: INSOMNIA
     Dosage: 0.25 MG, QD
     Route: 048
  2. COMELIAN [Concomitant]
     Indication: PROTEIN URINE
     Dosage: 400 MG, QD
     Route: 048
     Dates: start: 20050101
  3. SLOW-K [Concomitant]
     Dosage: 600 MG, QD
     Route: 048
     Dates: start: 20060101
  4. ALENDRONATE SODIUM [Suspect]
     Indication: OSTEOPOROSIS
     Dosage: 5 MG, QD
     Route: 048
     Dates: start: 20060101, end: 20120501
  5. PURSENNID (SENNOSIDES) [Concomitant]
     Indication: CONSTIPATION
     Dosage: 48 MG, QD
     Route: 048
  6. MUCOSTA [Concomitant]
     Indication: ABDOMINAL PAIN UPPER
     Dosage: 400 MG, QD
     Route: 048
     Dates: start: 20060101
  7. ELCITONIN [Concomitant]
     Indication: OSTEOPOROSIS
     Route: 058
     Dates: start: 20060101
  8. APLACE [Concomitant]
     Indication: GASTRITIS
     Dosage: 400 MG, QD
     Route: 048
  9. FAMOTIDINE [Concomitant]
     Indication: ABDOMINAL PAIN UPPER
     Dosage: 80 MG, QD
     Route: 048
  10. KREMEZIN [Concomitant]
     Indication: RENAL FAILURE
     Dosage: 4 G, QD
     Route: 048
     Dates: start: 20050101
  11. ALANTA [Concomitant]
     Indication: GASTRITIS
     Dosage: 9 DF, QD
     Route: 048
  12. DEPAS [Concomitant]
     Indication: ANXIETY
     Dosage: 2 MG, QD
     Route: 048
  13. PERSANTINE [Concomitant]
     Dosage: 100 MG, QD
     Route: 048

REACTIONS (1)
  - FEMUR FRACTURE [None]
